FAERS Safety Report 7675838-8 (Version None)
Quarter: 2011Q3

REPORT INFORMATION
  Report Type: 
  Country: None (occurrence: None)
  Receive Date: 20110810
  Receipt Date: 20110728
  Transmission Date: 20111222
  Serious: Yes (Other)
  Sender: FDA-Public Use
  Company Number: HK-MYLANLABS-2011S1015889

PATIENT
  Age: 32 Year
  Sex: Female

DRUGS (1)
  1. KETAMINE HCL [Suspect]
     Indication: SUBSTANCE USE
     Route: 055

REACTIONS (2)
  - BILIARY TRACT DISORDER [None]
  - INTENTIONAL DRUG MISUSE [None]
